FAERS Safety Report 8967119 (Version 2)
Quarter: 2012Q4

REPORT INFORMATION
  Report Type: 
  Country: JP (occurrence: JP)
  Receive Date: 20121214
  Receipt Date: 20121231
  Transmission Date: 20130627
  Serious: Yes (Hospitalization)
  Sender: FDA-Public Use
  Company Number: JP-B.I. PHARMACEUTICALS,INC./RIDGEFIELD-2012-BI-02865NB

PATIENT
  Age: 78 Year
  Sex: Male

DRUGS (4)
  1. PRADAXA [Suspect]
     Indication: ATRIAL FIBRILLATION
     Dosage: 220 mg
     Route: 048
     Dates: end: 20121207
  2. GASPORT [Concomitant]
     Indication: GASTRITIS
     Dosage: 40 mg
     Route: 048
  3. URIEF [Concomitant]
     Indication: BENIGN PROSTATIC HYPERPLASIA
     Dosage: 8 mg
     Route: 065
  4. DEPAS [Concomitant]
     Indication: INSOMNIA
     Dosage: 0.5 mg
     Route: 065

REACTIONS (2)
  - Osteoarthritis [Unknown]
  - Overdose [Unknown]
